FAERS Safety Report 5510453-3 (Version None)
Quarter: 2007Q4

REPORT INFORMATION
  Report Type: 
  Country: None (occurrence: None)
  Receive Date: 20071108
  Receipt Date: 20071025
  Transmission Date: 20080405
  Serious: Yes (Life-Threatening, Hospitalization)
  Sender: FDA-Public Use
  Company Number: NO-RANBAXY-2007R1-11040

PATIENT
  Sex: Female

DRUGS (12)
  1. PIROXICAM [Suspect]
     Indication: ARTHRALGIA
     Route: 048
  2. IBUX [Suspect]
     Indication: ARTHRALGIA
     Dosage: UNK
     Route: 048
     Dates: start: 20070801
  3. COZAAR [Suspect]
     Indication: HYPERTENSION
     Dosage: UNK
     Route: 048
  4. DICLOFENAC BASICS 50 MG MAGENSAFTRESISTENT [Suspect]
     Indication: ARTHRALGIA
     Dosage: 150 MG, UNK
     Dates: start: 20070801
  5. NAPROXEN TABLETS BP [Suspect]
     Indication: ARTHRALGIA
     Route: 048
  6. FUROSEMIDE TABLETS BP 40MG [Suspect]
     Indication: OEDEMA
     Dosage: 40 MG, UNK
     Route: 048
     Dates: start: 20070828
  7. FENAZON-KOFFEIN [Concomitant]
  8. VIVAL [Concomitant]
  9. DOXYCYCLINE [Concomitant]
     Dosage: UNK
     Dates: start: 20070828
  10. HERBAL PREPARATION [Concomitant]
  11. PINEX FORTE [Concomitant]
  12. PARACETAMOL [Concomitant]

REACTIONS (2)
  - DRUG INTERACTION [None]
  - HYPONATRAEMIA [None]
